FAERS Safety Report 4818056-0 (Version None)
Quarter: 2005Q4

REPORT INFORMATION
  Report Type: 
  Country: None (occurrence: None)
  Receive Date: 20051102
  Receipt Date: 20050131
  Transmission Date: 20060501
  Serious: Yes (Hospitalization)
  Sender: FDA-Public Use
  Company Number: US-MERCK-0502USA00032

PATIENT
  Age: 71 Year
  Sex: Male
  Weight: 84 kg

DRUGS (1)
  1. VIOXX [Suspect]
     Indication: SHOULDER PAIN
     Route: 048
     Dates: start: 19990723, end: 20000622

REACTIONS (4)
  - ANXIETY [None]
  - CAROTID ENDARTERECTOMY [None]
  - CEREBROVASCULAR ACCIDENT [None]
  - NEPHROLITHIASIS [None]
